FAERS Safety Report 14250352 (Version 3)
Quarter: 2018Q2

REPORT INFORMATION
  Report Type: Spontaneous
  Country: PL (occurrence: PL)
  Receive Date: 20171205
  Receipt Date: 20180613
  Transmission Date: 20180711
  Serious: Yes (Other)
  Sender: FDA-Public Use
  Company Number: PL-ACCORD-061647

PATIENT
  Age: 86 Year
  Sex: Male

DRUGS (5)
  1. IDARUCIZUMAB [Concomitant]
     Active Substance: IDARUCIZUMAB
     Dosage: 2.5 G IN 50 ML, IV BOLUS
     Route: 040
  2. CLOPIDOGREL [Suspect]
     Active Substance: CLOPIDOGREL BISULFATE
     Indication: ANTICOAGULANT THERAPY
  3. PROTAMINE [Concomitant]
     Active Substance: PROTAMINE
  4. ACETYLSALICYLIC ACID [Suspect]
     Active Substance: ASPIRIN
     Indication: ANTICOAGULANT THERAPY
  5. HEPARIN [Concomitant]
     Active Substance: HEPARIN SODIUM

REACTIONS (1)
  - Haemorrhagic disorder [Unknown]
